FAERS Safety Report 4527921-3 (Version None)
Quarter: 2004Q4

REPORT INFORMATION
  Report Type: 
  Country: None (occurrence: None)
  Receive Date: 20041123
  Receipt Date: 20040429
  Transmission Date: 20050328
  Serious: Yes (Hospitalization)
  Sender: FDA-Public Use
  Company Number: 20040500296

PATIENT
  Age: 72 Year
  Sex: Female

DRUGS (2)
  1. MORPHINE [Suspect]
     Indication: PAIN
     Dosage: 0.999 MG DAILY IT
     Route: 037
     Dates: end: 20040401
  2. MORPHINE [Suspect]
     Indication: PAIN
     Dosage: 1.097 MG DAILY IT
     Route: 037
     Dates: start: 20040401

REACTIONS (1)
  - DRUG WITHDRAWAL SYNDROME [None]
